FAERS Safety Report 7852864-7 (Version None)
Quarter: 2011Q3

REPORT INFORMATION
  Report Type: 
  Country: None (occurrence: None)
  Receive Date: 20110913
  Receipt Date: 20110718
  Transmission Date: 20111222
  Serious: Yes (Hospitalization)
  Sender: FDA-Public Use
  Company Number: 20110538

PATIENT
  Sex: Female

DRUGS (1)
  1. KETOROLAC TROMETHAMINE [Suspect]
     Dosage: NASAL
     Route: 045

REACTIONS (1)
  - GASTRITIS [None]
